FAERS Safety Report 21890167 (Version 2)
Quarter: 2023Q2

REPORT INFORMATION
  Report Type: Report from Study
  Country: US (occurrence: US)
  Receive Date: 20230120
  Receipt Date: 20230407
  Transmission Date: 20230722
  Serious: Yes (Hospitalization)
  Sender: FDA-Public Use
  Company Number: US-ABBVIE-4275970

PATIENT
  Age: 67 Year
  Sex: Male
  Weight: 91 kg

DRUGS (8)
  1. HUMIRA [Suspect]
     Active Substance: ADALIMUMAB
     Indication: Ankylosing spondylitis
     Route: 058
     Dates: start: 2018, end: 2021
  2. HUMIRA [Suspect]
     Active Substance: ADALIMUMAB
     Route: 058
  3. HUMIRA [Suspect]
     Active Substance: ADALIMUMAB
     Route: 058
     Dates: start: 2021
  4. One A Day Multiivitamin [Concomitant]
     Indication: Supplementation therapy
  5. LISINOPRIL [Concomitant]
     Active Substance: LISINOPRIL
     Indication: Blood pressure management
  6. Atorvastatin/Lipitor [Concomitant]
     Indication: Blood cholesterol abnormal
  7. Pradaxa oral tablet [Concomitant]
     Indication: Anticoagulant therapy
  8. TOPROL XL [Concomitant]
     Active Substance: METOPROLOL SUCCINATE
     Indication: Atrial fibrillation

REACTIONS (4)
  - Atrial fibrillation [Recovered/Resolved]
  - Ankylosing spondylitis [Not Recovered/Not Resolved]
  - Heart rate irregular [Unknown]
  - Neck pain [Unknown]

NARRATIVE: CASE EVENT DATE: 20221228
